FAERS Safety Report 8056162-0 (Version None)
Quarter: 2012Q1

REPORT INFORMATION
  Report Type: 
  Country: None (occurrence: None)
  Receive Date: 20120119
  Receipt Date: 20120109
  Transmission Date: 20120608
  Serious: Yes (Hospitalization)
  Sender: FDA-Public Use
  Company Number: US-BAYER-2010-002679

PATIENT
  Age: 36 Year
  Sex: Female
  Weight: 131.52 kg

DRUGS (4)
  1. METOPROLOL TARTRATE [Concomitant]
     Indication: HYPERTENSION
     Dosage: UNK
     Dates: start: 19990101
  2. TOPROL-XL [Concomitant]
  3. YAZ [Suspect]
     Dosage: UNK
     Dates: start: 20050101, end: 20100101
  4. YASMIN [Suspect]
     Dosage: UNK
     Dates: start: 20050101, end: 20100101

REACTIONS (1)
  - GALLBLADDER INJURY [None]
